FAERS Safety Report 14029610 (Version 3)
Quarter: 2019Q3

REPORT INFORMATION
  Report Type: Report from Study
  Country: US (occurrence: US)
  Receive Date: 20170930
  Receipt Date: 20190801
  Transmission Date: 20191004
  Serious: Yes (Hospitalization, Other)
  Sender: FDA-Public Use
  Company Number: US-SA-2017SA126654

PATIENT
  Age: 30 Year
  Sex: Female

DRUGS (4)
  1. TERIFLUNOMIDE. [Suspect]
     Active Substance: TERIFLUNOMIDE
     Dosage: 14 MG, QD, THERAPY STOP DATE- 01-JUN-2018
     Route: 048
  2. METHYLPREDNISOLONE. [Suspect]
     Active Substance: METHYLPREDNISOLONE
  3. TERIFLUNOMIDE. [Suspect]
     Active Substance: TERIFLUNOMIDE
     Indication: MULTIPLE SCLEROSIS
     Dosage: 14 MG, QD
     Route: 048
     Dates: start: 20170608
  4. DEXAMETHASONE. [Suspect]
     Active Substance: DEXAMETHASONE

REACTIONS (9)
  - Drug hypersensitivity [Unknown]
  - Multiple sclerosis relapse [Not Recovered/Not Resolved]
  - Heart rate decreased [Unknown]
  - Inappropriate schedule of product administration [Not Recovered/Not Resolved]
  - Adrenal suppression [Unknown]
  - Burning sensation [Not Recovered/Not Resolved]
  - Paraesthesia [Not Recovered/Not Resolved]
  - Hypoaesthesia [Not Recovered/Not Resolved]
  - Product dose omission [Unknown]
